FAERS Safety Report 9538663 (Version 2)
Quarter: 2014Q2

REPORT INFORMATION
  Report Type: Spontaneous
  Country: US (occurrence: None)
  Receive Date: 20130917
  Receipt Date: 20140527
  Transmission Date: 20141212
  Serious: Yes (Other)
  Sender: FDA-Public Use
  Company Number: 2013-US-000304

PATIENT
  Age: 65 Year
  Sex: Male

DRUGS (12)
  1. XYREM [Suspect]
     Indication: NARCOLEPSY
     Route: 048
     Dates: start: 20121126, end: 201304
  2. LISINOPRIL (LISINOPRIL) [Concomitant]
  3. INDOMETHACIN (INDOMETHACIN) [Concomitant]
  4. MODAFINIL (MODAFINIL) [Concomitant]
  5. HYDROCHLOROTHIAZIDE (HYDROCHLOROTHIAZIDE) [Concomitant]
  6. ATENOLOL (ATENOLOL) [Concomitant]
  7. OMEPRAZOLE (OMEPRAZOLE) [Concomitant]
  8. OXYCODONE / ACETAMINOPHEN (OXYCODONE HYDROCHLORIDE, PARACETAMOL) [Concomitant]
  9. ALBUTEROL (SALBUTAMOL SULFATE) [Concomitant]
  10. SERTRALINE (SERTRALINE HYDROCHLORIDE) [Concomitant]
  11. SYNTHROID (LEVOTHYROXINE SODIUM) [Concomitant]
  12. ANDROGEL (TESTOSTERONE) [Concomitant]

REACTIONS (8)
  - Surgery [None]
  - Surgery [None]
  - Myocardial infarction [None]
  - Gout [None]
  - Vitamin D decreased [None]
  - Blood iron decreased [None]
  - Procedural complication [None]
  - Post procedural complication [None]
